FAERS Safety Report 5826590-X (Version None)
Quarter: 2008Q3

REPORT INFORMATION
  Report Type: 
  Country: None (occurrence: None)
  Receive Date: 20080728
  Receipt Date: 20080728
  Transmission Date: 20090109
  Serious: Yes (Hospitalization)
  Sender: FDA-Public Use
  Company Number: None

PATIENT
  Age: 59 Year
  Sex: Female
  Weight: 93.441 kg

DRUGS (1)
  1. NAFCILLIN SODIUM [Suspect]
     Indication: BACTERAEMIA
     Dosage: 2 GM EVERY 4 HOURS IV
     Route: 042
     Dates: start: 20080626, end: 20080714

REACTIONS (1)
  - HYPERSENSITIVITY [None]
